APPROVED DRUG PRODUCT: SUBOXONE
Active Ingredient: BUPRENORPHINE HYDROCHLORIDE; NALOXONE HYDROCHLORIDE
Strength: EQ 8MG BASE;EQ 2MG BASE
Dosage Form/Route: FILM;BUCCAL, SUBLINGUAL
Application: N022410 | Product #002 | TE Code: AB
Applicant: INDIVIOR INC
Approved: Aug 30, 2010 | RLD: Yes | RS: No | Type: RX

PATENTS:
Patent 9687454 | Expires: Aug 7, 2029
Patent 11135216 | Expires: Aug 7, 2029
Patent 8475832 | Expires: Mar 26, 2030